FAERS Safety Report 26034287 (Version 1)
Quarter: 2025Q4

REPORT INFORMATION
  Report Type: Spontaneous
  Country: US (occurrence: None)
  Receive Date: 20251111
  Receipt Date: 20251111
  Transmission Date: 20260118
  Serious: Yes (Other)
  Sender: FDA-CTU
  Company Number: None

PATIENT
  Age: 78 Year
  Sex: Female

DRUGS (2)
  1. LENALIDOMIDE [Suspect]
     Active Substance: LENALIDOMIDE
     Dosage: 5MG DAILY FOR 21 DAYS THEN 7 DAYS OFF?
  2. LOSARTAN [Suspect]
     Active Substance: LOSARTAN

REACTIONS (1)
  - Arrhythmia [None]
